FAERS Safety Report 20744177 (Version 1)
Quarter: 2022Q2

REPORT INFORMATION
  Report Type: Spontaneous
  Country: US (occurrence: US)
  Receive Date: 20220425
  Receipt Date: 20220425
  Transmission Date: 20220721
  Serious: Yes (Other)
  Sender: FDA-Public Use
  Company Number: US-GLENMARK PHARMACEUTICALS-2022GMK069812

PATIENT

DRUGS (3)
  1. PROPAFENONE HYDROCHLORIDE [Suspect]
     Active Substance: PROPAFENONE HYDROCHLORIDE
     Indication: Atrial fibrillation
     Dosage: 425 MILLIGRAM, BID
     Route: 048
     Dates: start: 20220108, end: 20220110
  2. PRADAXA [Concomitant]
     Active Substance: DABIGATRAN ETEXILATE MESYLATE
     Indication: Anticoagulant therapy
     Dosage: 850 MILLIGRAM, QD
     Route: 048
  3. ATORVASTATIN [Concomitant]
     Active Substance: ATORVASTATIN
     Indication: Blood cholesterol
     Dosage: 40 MILLIGRAM, QD
     Route: 048

REACTIONS (6)
  - Drug ineffective [Unknown]
  - Feeling hot [Recovered/Resolved]
  - Feeling abnormal [Recovered/Resolved]
  - Heart rate irregular [Recovered/Resolved]
  - Heart rate increased [Recovered/Resolved]
  - Product substitution issue [Unknown]

NARRATIVE: CASE EVENT DATE: 20220108
